FAERS Safety Report 7365423-X (Version None)
Quarter: 2011Q1

REPORT INFORMATION
  Report Type: 
  Country: None (occurrence: None)
  Receive Date: 20110310
  Receipt Date: 20101110
  Transmission Date: 20110831
  Serious: Yes (Death)
  Sender: FDA-Public Use
  Company Number: JP-20100041

PATIENT
  Age: 73 Year
  Sex: Female

DRUGS (3)
  1. (LIPIODOL ULTRA FLUIDE) (ETHIODIZED OIL) [Suspect]
     Indication: THERAPEUTIC EMBOLISATION
     Dosage: INTRA-ARTERIAL
     Route: 013
  2. C (MITOMYCIN C)(MITOMYCIN C) [Suspect]
     Indication: THERAPEUTIC EMBOLISATION
     Dosage: INTRA-ARTERIAL
     Route: 013
  3. (FARMORUBICIN)(EPIRUBICIN HYDOROCHLORIDE) [Suspect]
     Dosage: INTRA-ARTERIAL
     Route: 013

REACTIONS (3)
  - POST PROCEDURAL HAEMORRHAGE [None]
  - OFF LABEL USE [None]
  - TUMOUR LYSIS SYNDROME [None]
